FAERS Safety Report 21217155 (Version 7)
Quarter: 2023Q2

REPORT INFORMATION
  Report Type: Report from Study
  Country: KR (occurrence: KR)
  Receive Date: 20220816
  Receipt Date: 20230516
  Transmission Date: 20230722
  Serious: Yes (Hospitalization)
  Sender: FDA-Public Use
  Company Number: KR-NOVARTISPH-NVSC2022KR184033

PATIENT
  Age: 72 Year
  Sex: Female
  Weight: 50.5 kg

DRUGS (24)
  1. PIQRAY [Suspect]
     Active Substance: ALPELISIB
     Indication: Ovarian cancer
     Dosage: 200 MG, QD (DAILY)
     Route: 048
     Dates: start: 20220804, end: 20220808
  2. PIQRAY [Suspect]
     Active Substance: ALPELISIB
     Dosage: 200 MG, QD
     Route: 048
     Dates: start: 20220816
  3. OLAPARIB [Suspect]
     Active Substance: OLAPARIB
     Indication: Ovarian cancer
     Dosage: 400 MG, BID
     Route: 048
     Dates: start: 20220804, end: 20220807
  4. OLAPARIB [Suspect]
     Active Substance: OLAPARIB
     Dosage: 200 MG, QD
     Route: 048
     Dates: start: 20220808
  5. OLAPARIB [Suspect]
     Active Substance: OLAPARIB
     Dosage: 150 MG, BID
     Route: 048
     Dates: start: 20220816
  6. COZAAR [Concomitant]
     Active Substance: LOSARTAN POTASSIUM
     Indication: Hypertension
     Dosage: UNK
     Route: 065
     Dates: start: 1992, end: 20220914
  7. NEBIVOLOL [Concomitant]
     Active Substance: NEBIVOLOL
     Indication: Hypertension
     Dosage: UNK
     Route: 065
     Dates: start: 1992, end: 20220914
  8. ASPIRIN [Concomitant]
     Active Substance: ASPIRIN
     Indication: Thrombosis prophylaxis
     Dosage: UNK
     Route: 065
     Dates: start: 2020, end: 20220921
  9. CRESTOR [Concomitant]
     Active Substance: ROSUVASTATIN CALCIUM
     Indication: Prophylaxis
     Dosage: UNK
     Route: 065
     Dates: start: 2020, end: 20220914
  10. EZETIMIBE [Concomitant]
     Active Substance: EZETIMIBE
     Indication: Prophylaxis
     Dosage: UNK
     Route: 065
     Dates: start: 2020, end: 20220914
  11. PLAVITOR [Concomitant]
     Indication: Thrombosis prophylaxis
     Dosage: UNK
     Route: 065
     Dates: start: 2020, end: 20220914
  12. INSADOL [Concomitant]
     Active Substance: .BETA.-SITOSTEROL
     Indication: Nutritional supplementation
     Dosage: UNK
     Route: 065
     Dates: start: 202206, end: 20220812
  13. PENIRAMIN [Concomitant]
     Indication: Premedication
     Dosage: UNK
     Route: 065
     Dates: start: 20220719, end: 20220719
  14. GABAPENTIN [Concomitant]
     Active Substance: GABAPENTIN
     Indication: Peripheral sensory neuropathy
     Dosage: UNK
     Route: 065
     Dates: start: 20220723, end: 20220726
  15. ORNITHINE ASPARTATE [Concomitant]
     Active Substance: ORNITHINE ASPARTATE
     Indication: Aspartate aminotransferase increased
     Dosage: UNK
     Route: 065
     Dates: start: 20220723, end: 20220723
  16. ORNITHINE ASPARTATE [Concomitant]
     Active Substance: ORNITHINE ASPARTATE
     Indication: Prophylaxis
     Dosage: UNK
     Route: 065
     Dates: start: 20220724, end: 20220725
  17. ORNITHINE ASPARTATE [Concomitant]
     Active Substance: ORNITHINE ASPARTATE
     Indication: Alanine aminotransferase increased
  18. PARAMACET SEMI [Concomitant]
     Indication: Abdominal pain
     Dosage: UNK
     Route: 065
     Dates: start: 20220724, end: 20220725
  19. VENOFERRUM [Concomitant]
     Indication: Anaemia
     Dosage: UNK
     Route: 065
     Dates: start: 20220724, end: 20220724
  20. BINICAPIN [Concomitant]
     Indication: Hypertension
     Dosage: UNK
     Route: 065
     Dates: start: 20220725, end: 20220725
  21. NORVASC [Concomitant]
     Active Substance: AMLODIPINE BESYLATE
     Indication: Hypertension
     Dosage: UNK
     Route: 065
     Dates: start: 20220725, end: 20220725
  22. ALLEGRA [Concomitant]
     Active Substance: FEXOFENADINE HYDROCHLORIDE
     Indication: Prophylaxis
     Dosage: UNK
     Route: 065
     Dates: start: 20220804, end: 20220914
  23. MEGACE [Concomitant]
     Active Substance: MEGESTROL ACETATE
     Indication: Decreased appetite
     Dosage: SUSP
     Route: 065
     Dates: start: 20220804, end: 20220820
  24. SANCUSO [Concomitant]
     Active Substance: GRANISETRON
     Indication: Prophylaxis of nausea and vomiting
     Dosage: PATCH
     Route: 065
     Dates: start: 20220804, end: 20220811

REACTIONS (1)
  - Fatigue [Recovering/Resolving]

NARRATIVE: CASE EVENT DATE: 20220808
